FAERS Safety Report 7568973-6 (Version None)
Quarter: 2011Q2

REPORT INFORMATION
  Report Type: 
  Country: None (occurrence: None)
  Receive Date: 20110623
  Receipt Date: 20110620
  Transmission Date: 20111010
  Serious: Yes (Hospitalization, Other)
  Sender: FDA-Public Use
  Company Number: US-UCBSA-035831

PATIENT
  Sex: Male
  Weight: 88.6 kg

DRUGS (1)
  1. CIMZIA [Suspect]
     Indication: CROHN'S DISEASE
     Route: 058
     Dates: start: 20090801, end: 20110318

REACTIONS (9)
  - PNEUMONIA [None]
  - ORGANISING PNEUMONIA [None]
  - HYPERPYREXIA [None]
  - ABASIA [None]
  - FALL [None]
  - HEART RATE INCREASED [None]
  - ARTHRALGIA [None]
  - DYSPNOEA [None]
  - LUNG DISORDER [None]
